FAERS Safety Report 24390510 (Version 1)
Quarter: 2024Q4

REPORT INFORMATION
  Report Type: Spontaneous
  Country: US (occurrence: US)
  Receive Date: 20241003
  Receipt Date: 20241003
  Transmission Date: 20250115
  Serious: Yes (Other)
  Sender: AMGEN
  Company Number: US-AMGEN-USASP2024193767

PATIENT
  Age: 82 Year
  Sex: Female

DRUGS (3)
  1. TEPROTUMUMAB [Suspect]
     Active Substance: TEPROTUMUMAB
     Indication: Endocrine ophthalmopathy
     Dosage: UNK (FIRST INFUSION)
     Route: 042
  2. TEPROTUMUMAB [Suspect]
     Active Substance: TEPROTUMUMAB
     Dosage: UNK (FOURTH INFUSION)
     Route: 042
  3. TEPROTUMUMAB [Suspect]
     Active Substance: TEPROTUMUMAB
     Dosage: UNK (REMAINING FOUR INFUSION)
     Route: 042

REACTIONS (1)
  - Optic neuropathy [Unknown]
